FAERS Safety Report 10158211 (Version 2)
Quarter: 2014Q2

REPORT INFORMATION
  Report Type: Report from Study
  Country: US (occurrence: US)
  Receive Date: 20140507
  Receipt Date: 20140507
  Transmission Date: 20141212
  Serious: No
  Sender: FDA-Public Use
  Company Number: PHHY2010US68318

PATIENT
  Age: 52 Year
  Sex: Male

DRUGS (7)
  1. TASIGNA [Suspect]
     Indication: CHRONIC MYELOID LEUKAEMIA
     Dosage: 150 MG, BID
     Route: 048
     Dates: start: 20100921
  2. TASIGNA [Suspect]
     Dosage: 150 MG, QD
     Route: 048
  3. TASIGNA [Suspect]
     Dosage: 300 MG, BID
     Route: 048
     Dates: start: 20110104
  4. TASIGNA [Suspect]
     Dosage: 300 MG, BID
     Route: 048
     Dates: start: 20110318
  5. KETOKONAZOL [Suspect]
  6. VITAMIN D3 [Suspect]
  7. FLAXSEED OIL [Concomitant]
     Indication: ARTHRALGIA

REACTIONS (17)
  - Skin lesion [Unknown]
  - Inappropriate schedule of drug administration [Unknown]
  - Ingrown hair [Unknown]
  - Acne [Recovering/Resolving]
  - Back pain [Recovering/Resolving]
  - Painful respiration [Recovering/Resolving]
  - Fatigue [Recovering/Resolving]
  - Abdominal pain [Recovering/Resolving]
  - Eczema [Recovering/Resolving]
  - Pruritus [Recovering/Resolving]
  - Peripheral swelling [Unknown]
  - Headache [Unknown]
  - Pain of skin [Unknown]
  - Folliculitis [Unknown]
  - Pain in extremity [Unknown]
  - Anxiety [Unknown]
  - Depression [Unknown]
